FAERS Safety Report 4959949-3 (Version None)
Quarter: 2006Q1

REPORT INFORMATION
  Report Type: 
  Country: None (occurrence: None)
  Receive Date: 20060331
  Receipt Date: 20051130
  Transmission Date: 20060701
  Serious: Yes (Life-Threatening, Hospitalization, Disabling, Other)
  Sender: FDA-Public Use
  Company Number: US-MERCK-0512USA00281

PATIENT
  Age: 52 Year
  Sex: Female
  Weight: 72 kg

DRUGS (2)
  1. VIOXX [Suspect]
     Indication: ARTHRITIS
     Route: 048
     Dates: start: 20001212, end: 20030101
  2. VIOXX [Suspect]
     Indication: ARTHRALGIA
     Route: 048
     Dates: start: 20001212, end: 20030101

REACTIONS (16)
  - ARRHYTHMIA [None]
  - ATRIAL FIBRILLATION [None]
  - BACK INJURY [None]
  - BREAST DISORDER [None]
  - CARDIAC VALVE DISEASE [None]
  - CHEST PAIN [None]
  - CHRONIC OBSTRUCTIVE PULMONARY DISEASE [None]
  - DEPRESSION [None]
  - FIBROMYALGIA [None]
  - FOOT FRACTURE [None]
  - HAEMOPTYSIS [None]
  - HEART INJURY [None]
  - MIXED CONNECTIVE TISSUE DISEASE [None]
  - MYOCARDIAL INFARCTION [None]
  - ROTATOR CUFF SYNDROME [None]
  - UPPER LIMB FRACTURE [None]
